FAERS Safety Report 8420016 (Version 2)
Quarter: 2013Q1

REPORT INFORMATION
  Report Type: Spontaneous
  Country: US (occurrence: None)
  Receive Date: 20120209
  Receipt Date: 20130124
  Transmission Date: 20140127
  Serious: Yes (Hospitalization)
  Sender: FDA-Public Use
  Company Number: JPI-P-018905

PATIENT
  Age: 86 Year
  Sex: Female

DRUGS (19)
  1. ORAL DIABETES MEDICATIONS [Concomitant]
  2. ASPIRIN [Concomitant]
  3. ATENOLOL [Concomitant]
  4. DILTIAZEM [Concomitant]
  5. FENTANYL [Concomitant]
  6. FLUTICASONE W/SALMETEROL [Concomitant]
  7. FUROSEMIDE [Concomitant]
  8. GLYBURIDE [Concomitant]
  9. GUAIFENESIN [Concomitant]
  10. HYDROCODONE BITARTRATE AND ACETAMINOPHEN [Concomitant]
  11. MECLIZINE HCL [Concomitant]
  12. METHYLPHENIDATE [Concomitant]
  13. MODAFINIL [Concomitant]
  14. PANTOPRAZOLE [Concomitant]
  15. POTASSIUM CHLORIDE [Concomitant]
  16. VENLAFAXINE [Concomitant]
  17. OXYCODONE [Concomitant]
  18. XYREM [Suspect]
     Indication: CATAPLEXY
     Dosage: (4.5 GM, 2 1 D)
     Route: 048
     Dates: start: 20041222, end: 2006
  19. PRAMIPEXOLE [Suspect]
     Indication: RESTLESS LEGS SYNDROME

REACTIONS (10)
  - Pneumonia [None]
  - Cardiac failure congestive [None]
  - Dyspnoea [None]
  - Malaise [None]
  - Asthenia [None]
  - Oedema peripheral [None]
  - Haematoma [None]
  - Cellulitis [None]
  - Infection [None]
  - Condition aggravated [None]
